FAERS Safety Report 6010303-5 (Version None)
Quarter: 2008Q4

REPORT INFORMATION
  Report Type: 
  Country: None (occurrence: None)
  Receive Date: 20081218
  Receipt Date: 20080519
  Transmission Date: 20090506
  Serious: No
  Sender: FDA-Public Use
  Company Number: A0728551A

PATIENT
  Sex: Male

DRUGS (2)
  1. FLONASE [Suspect]
     Indication: SINUS DISORDER
     Dosage: 2SPR AS REQUIRED
     Route: 045
     Dates: start: 20071101
  2. MICARDIS [Concomitant]

REACTIONS (1)
  - EPISTAXIS [None]
